FAERS Safety Report 5410454-X (Version None)
Quarter: 2007Q3

REPORT INFORMATION
  Report Type: 
  Country: None (occurrence: None)
  Receive Date: 20070810
  Receipt Date: 20070221
  Transmission Date: 20080115
  Serious: No
  Sender: FDA-Public Use
  Company Number: A0640445A

PATIENT
  Sex: Male

DRUGS (1)
  1. PAXIL [Suspect]
     Indication: ANXIETY
     Dosage: 1TSP PER DAY
     Route: 048
     Dates: start: 20061228

REACTIONS (7)
  - ANGER [None]
  - DIARRHOEA [None]
  - DRUG INEFFECTIVE [None]
  - INCREASED APPETITE [None]
  - INFLUENZA [None]
  - THERAPEUTIC RESPONSE UNEXPECTED [None]
  - WEIGHT FLUCTUATION [None]
